FAERS Safety Report 16807302 (Version 2)
Quarter: 2020Q2

REPORT INFORMATION
  Report Type: Spontaneous
  Country: US (occurrence: US)
  Receive Date: 20190913
  Receipt Date: 20200427
  Transmission Date: 20200713
  Serious: Yes (Other)
  Sender: FDA-Public Use
  Company Number: US-ALLERGAN-1937483US

PATIENT
  Sex: Male

DRUGS (4)
  1. CEFTAROLINE FOSAMIL - BP [Suspect]
     Active Substance: CEFTAROLINE FOSAMIL
     Indication: EVIDENCE BASED TREATMENT
  2. CEFTAROLINE FOSAMIL - BP [Suspect]
     Active Substance: CEFTAROLINE FOSAMIL
     Indication: SALMONELLA BACTERAEMIA
     Dosage: 600 MG, Q8HR
     Route: 042
  3. CEFTAROLINE FOSAMIL - BP [Suspect]
     Active Substance: CEFTAROLINE FOSAMIL
     Indication: STAPHYLOCOCCAL INFECTION
     Dosage: 600 MG, Q12H
     Route: 042
  4. CEFTAROLINE FOSAMIL - BP [Suspect]
     Active Substance: CEFTAROLINE FOSAMIL
     Indication: OSTEOMYELITIS

REACTIONS (2)
  - Drug level above therapeutic [Unknown]
  - Toxic encephalopathy [Unknown]
